FAERS Safety Report 18503730 (Version 5)
Quarter: 2020Q4

REPORT INFORMATION
  Report Type: Report from Study
  Country: US (occurrence: US)
  Receive Date: 20201113
  Receipt Date: 20201216
  Transmission Date: 20210114
  Serious: Yes (Hospitalization)
  Sender: FDA-Public Use
  Company Number: NVSC2020US301475

PATIENT
  Sex: Female

DRUGS (3)
  1. ENTRESTO [Suspect]
     Active Substance: SACUBITRIL\VALSARTAN
     Dosage: UNK
     Route: 065
  2. ENTRESTO [Suspect]
     Active Substance: SACUBITRIL\VALSARTAN
     Indication: PROPHYLAXIS
     Dosage: 50 MG (24/26 MG), UNKNOWN
     Route: 048
  3. ENTRESTO [Suspect]
     Active Substance: SACUBITRIL\VALSARTAN
     Dosage: UNK
     Route: 065

REACTIONS (11)
  - Arthropathy [Unknown]
  - Cardiomyopathy [Unknown]
  - Musculoskeletal discomfort [Unknown]
  - Illness [Unknown]
  - Paraesthesia [Unknown]
  - Product use in unapproved indication [Unknown]
  - Muscle disorder [Unknown]
  - Product quality issue [Unknown]
  - Muscle spasms [Unknown]
  - Cardiac discomfort [Unknown]
  - Gait inability [Unknown]
